FAERS Safety Report 5996925-6 (Version None)
Quarter: 2008Q4

REPORT INFORMATION
  Report Type: 
  Country: None (occurrence: None)
  Receive Date: 20081212
  Receipt Date: 20081028
  Transmission Date: 20090506
  Serious: No
  Sender: FDA-Public Use
  Company Number: US-ABBOTT-08P-163-0484555-00

PATIENT
  Sex: Female

DRUGS (7)
  1. HUMIRA [Suspect]
     Indication: COLITIS ULCERATIVE
     Dates: start: 20080926, end: 20080926
  2. HUMIRA [Suspect]
     Dates: start: 20081010, end: 20081010
  3. HUMIRA [Suspect]
     Dates: start: 20081024
  4. DULOXETINE HYDROCHLORIDE [Concomitant]
     Indication: DEPRESSION
     Route: 048
  5. VITAMIN CAP [Concomitant]
     Indication: ROUTINE HEALTH MAINTENANCE
     Route: 048
  6. LO-OVERAL [Concomitant]
     Indication: CONTRACEPTION
     Route: 048
  7. LOMOTIL [Concomitant]
     Indication: DIARRHOEA
     Route: 048

REACTIONS (1)
  - DYSKINESIA [None]
